FAERS Safety Report 6710180-0 (Version None)
Quarter: 2010Q2

REPORT INFORMATION
  Report Type: 
  Country: None (occurrence: None)
  Receive Date: 20100504
  Receipt Date: 20100427
  Transmission Date: 20101027
  Serious: Yes (Other)
  Sender: FDA-Public Use
  Company Number: US-BRISTOL-MYERS SQUIBB COMPANY-15080625

PATIENT
  Age: 56 Year
  Sex: Female
  Weight: 105 kg

DRUGS (13)
  1. ONGLYZA [Suspect]
     Indication: TYPE 2 DIABETES MELLITUS
     Dates: start: 20100401
  2. NEXIUM [Concomitant]
  3. OXYCONTIN [Concomitant]
  4. CALCIUM + VITAMIN D [Concomitant]
  5. DRAMAMINE [Concomitant]
  6. ALLEGRA [Concomitant]
  7. PRAVACHOL [Concomitant]
  8. PREMARIN [Concomitant]
  9. PERI-COLACE [Concomitant]
  10. MIRAPEX [Concomitant]
  11. VALIUM [Concomitant]
  12. LORTAB [Concomitant]
  13. LOPID [Concomitant]

REACTIONS (1)
  - OROPHARYNGEAL BLISTERING [None]
